FAERS Safety Report 18623609 (Version 1)
Quarter: 2020Q4

REPORT INFORMATION
  Report Type: Spontaneous
  Country: AU (occurrence: AU)
  Receive Date: 20201216
  Receipt Date: 20201216
  Transmission Date: 20210114
  Serious: Yes (Life-Threatening, Hospitalization)
  Sender: FDA-Public Use
  Company Number: AU-AMNEAL PHARMACEUTICALS-2020-AMRX-03881

PATIENT
  Age: 45 Year
  Sex: Female

DRUGS (1)
  1. IBUPROFEN. [Suspect]
     Active Substance: IBUPROFEN
     Indication: DENTAL CARIES
     Dosage: 9.6 - 14.4G/DAY FOR SEVERAL MONTHS
     Route: 048

REACTIONS (4)
  - Intentional overdose [Unknown]
  - Hypokalaemia [Recovering/Resolving]
  - Renal tubular acidosis [Recovered/Resolved]
  - Gastric ulcer [Unknown]
